FAERS Safety Report 6322913-6 (Version None)
Quarter: 2009Q3

REPORT INFORMATION
  Report Type: 
  Country: None (occurrence: None)
  Receive Date: 20090824
  Receipt Date: 20090219
  Transmission Date: 20100115
  Serious: No
  Sender: FDA-Public Use
  Company Number: US-ABBOTT-09P-163-0558574-00

PATIENT
  Sex: Male

DRUGS (5)
  1. NIASPAN [Suspect]
     Indication: BLOOD CHOLESTEROL INCREASED
     Route: 048
     Dates: start: 20090218
  2. GLUCOPHAGE [Concomitant]
     Indication: DIABETES MELLITUS
  3. LISINOPRIL [Concomitant]
     Indication: HYPERTENSION
  4. PERCOCET [Concomitant]
     Indication: PAIN
  5. PERCOCET [Concomitant]
     Indication: INTERVERTEBRAL DISC PROTRUSION

REACTIONS (5)
  - GENERALISED ERYTHEMA [None]
  - HEART RATE INCREASED [None]
  - PARAESTHESIA [None]
  - PRURITUS [None]
  - SKIN BURNING SENSATION [None]
